FAERS Safety Report 12517634 (Version 10)
Quarter: 2019Q2

REPORT INFORMATION
  Report Type: Report from Study
  Country: JP (occurrence: JP)
  Receive Date: 20160630
  Receipt Date: 20190417
  Transmission Date: 20190711
  Serious: Yes (Hospitalization, Other)
  Sender: FDA-Public Use
  Company Number: PHJP2016JP018251

PATIENT
  Age: 52 Year
  Sex: Male

DRUGS (2)
  1. ZYKADIA [Suspect]
     Active Substance: CERITINIB
     Indication: NON-SMALL CELL LUNG CANCER STAGE IV
     Dosage: 750 MG, QD
     Route: 048
     Dates: start: 20160610, end: 20160722
  2. ZYKADIA [Suspect]
     Active Substance: CERITINIB
     Dosage: 600 MG, QD
     Route: 048
     Dates: start: 20160723, end: 20170104

REACTIONS (11)
  - Flatulence [Unknown]
  - Cholangitis [Recovered/Resolved]
  - Diarrhoea [Recovering/Resolving]
  - Non-small cell lung cancer stage IV [Recovering/Resolving]
  - Drug ineffective [Unknown]
  - Ileus [Recovered/Resolved]
  - Metastases to central nervous system [Recovering/Resolving]
  - Malignant neoplasm progression [Recovering/Resolving]
  - Seizure [Recovered/Resolved]
  - Metastases to meninges [Recovering/Resolving]
  - Abdominal pain [Recovered/Resolved]

NARRATIVE: CASE EVENT DATE: 20160610
